FAERS Safety Report 5148964-5 (Version None)
Quarter: 2006Q4

REPORT INFORMATION
  Report Type: 
  Country: None (occurrence: None)
  Receive Date: 20061113
  Receipt Date: 20060928
  Transmission Date: 20070319
  Serious: Yes (Hospitalization)
  Sender: FDA-Public Use
  Company Number: FR-AVENTIS-200613363FR

PATIENT
  Age: 64 Year
  Sex: Male
  Weight: 90 kg

DRUGS (3)
  1. RIFADIN [Suspect]
     Indication: OSTEITIS
     Route: 048
     Dates: start: 20060722, end: 20060912
  2. TARGOCID [Suspect]
     Indication: OSTEITIS
     Route: 042
     Dates: start: 20060722, end: 20060912
  3. CORDARONE                          /00133101/ [Concomitant]
     Indication: DRUG USE FOR UNKNOWN INDICATION
     Route: 048
     Dates: start: 20060703, end: 20060912

REACTIONS (9)
  - DERMATITIS EXFOLIATIVE [None]
  - EOSINOPHILIA [None]
  - OSTEOARTHRITIS [None]
  - POSTOPERATIVE RESPIRATORY DISTRESS [None]
  - RASH GENERALISED [None]
  - RED BLOOD CELL COUNT DECREASED [None]
  - RENAL FAILURE [None]
  - TOE AMPUTATION [None]
  - TOXIC SKIN ERUPTION [None]
